FAERS Safety Report 21525090 (Version 1)
Quarter: 2022Q4

REPORT INFORMATION
  Report Type: Spontaneous
  Country: FR (occurrence: FR)
  Receive Date: 20221030
  Receipt Date: 20221030
  Transmission Date: 20230113
  Serious: Yes (Other)
  Sender: FDA-Public Use
  Company Number: None

PATIENT

DRUGS (1)
  1. XARELTO [Suspect]
     Active Substance: RIVAROXABAN
     Indication: Product used for unknown indication
     Dosage: NON ADMINISTRE.
     Route: 048

REACTIONS (2)
  - Product packaging confusion [Recovered/Resolved]
  - Circumstance or information capable of leading to medication error [Recovered/Resolved]
